FAERS Safety Report 18341497 (Version 1)
Quarter: 2020Q4

REPORT INFORMATION
  Report Type: Spontaneous
  Country: IT (occurrence: IT)
  Receive Date: 20201004
  Receipt Date: 20201004
  Transmission Date: 20210113
  Serious: Yes (Hospitalization)
  Sender: FDA-Public Use
  Company Number: IT-TEVA-2020-IT-1834032

PATIENT
  Age: 38 Year
  Sex: Male

DRUGS (7)
  1. SERTRALINE [Suspect]
     Active Substance: SERTRALINE HYDROCHLORIDE
     Indication: DRUG ABUSE
     Dosage: 100 MG, ABUSE / MISUSE
     Route: 048
     Dates: start: 20180921, end: 20180921
  2. CLOZAPINE. [Suspect]
     Active Substance: CLOZAPINE
     Indication: DRUG ABUSE
     Dosage: 200 MG, ABUSE / MISUSE
     Route: 048
     Dates: start: 20180921, end: 20180921
  3. FELISON 30 MG CAPSULE RIGIDE [Suspect]
     Active Substance: FLURAZEPAM MONOHYDROCHLORIDE
     Indication: DRUG ABUSE
     Dosage: 1 DOSAGE FORM, ABUSE / MISUSE
     Route: 048
     Dates: start: 20180921, end: 20180921
  4. NOZINAN 25 MG COMPRESSE RIVESTITE CON FILM [Suspect]
     Active Substance: LEVOMEPROMAZINE
     Indication: DRUG ABUSE
     Dosage: 2 DOSAGE FORMS, ABUSE / MISUSE
     Route: 048
     Dates: start: 20180921, end: 20180921
  5. RISPERDAL [Suspect]
     Active Substance: RISPERIDONE
     Indication: DRUG ABUSE
     Dosage: 1 DOSAGE FORM, ABUSE / MISUSE
     Route: 048
     Dates: start: 20180921, end: 20180921
  6. GABAPENTIN. [Suspect]
     Active Substance: GABAPENTIN
     Indication: DRUG ABUSE
     Dosage: 600 MG, ABUSE / MISUSE
     Route: 048
     Dates: start: 20180921, end: 20180921
  7. TAVOR (LORAZEPAM) [Suspect]
     Active Substance: LORAZEPAM
     Indication: DRUG ABUSE
     Dosage: 5 MG, ABUSE / MISUSE
     Route: 048
     Dates: start: 20180921, end: 20180921

REACTIONS (3)
  - Vomiting [Recovering/Resolving]
  - Drug abuse [Recovering/Resolving]
  - Sopor [Recovering/Resolving]

NARRATIVE: CASE EVENT DATE: 20180921
